FAERS Safety Report 16845854 (Version 1)
Quarter: 2019Q3

REPORT INFORMATION
  Report Type: Spontaneous
  Country: US (occurrence: US)
  Receive Date: 20190924
  Receipt Date: 20190924
  Transmission Date: 20191005
  Serious: No
  Sender: FDA-Public Use
  Company Number: US-CATALYST PHARMACEUTICALS, INC-2019CAT00223

PATIENT
  Sex: Male
  Weight: 108.84 kg

DRUGS (18)
  1. PYRIDOSTIGMINE [Concomitant]
     Active Substance: PYRIDOSTIGMINE
     Dosage: 60 MG, 3X/DAY
  2. HYDROCHLORTOTHIAZIDE [Concomitant]
     Dosage: 25 MG, 1X/DAY IN THE MORNING
  3. AMLODIPINE [Concomitant]
     Active Substance: AMLODIPINE BESYLATE
     Dosage: 10 MG, 1X/DAY IN THE MORNING
  4. PULMICORT TURBUHALER [Concomitant]
     Active Substance: BUDESONIDE
     Dosage: 2 DOSAGE UNITS, 1X/DAYAT NIGHT
  5. FIRDAPSE [Suspect]
     Active Substance: AMIFAMPRIDINE
     Indication: MYASTHENIC SYNDROME
     Dosage: 15 MG, 3X/DAY
     Route: 048
     Dates: start: 2019
  6. PRILOSEC [Concomitant]
     Active Substance: OMEPRAZOLE MAGNESIUM
     Dosage: 20 MG, 1X/DAY
  7. METOPROLOL. [Concomitant]
     Active Substance: METOPROLOL
     Dosage: 100 MG, 1X/DAYIN THE MORNING
  8. ALBUTEROL RESCUE INHALER [Concomitant]
     Dosage: 2 DOSAGE UNITS, AS NEEDED
  9. KLORCON [Concomitant]
     Dosage: 40 MEQ, EVERY 48 HOURS ON EVEN DAYS
  10. ASPIRIN. [Concomitant]
     Active Substance: ASPIRIN
     Dosage: 81 MG, 1X/DAY
  11. IRON [Concomitant]
     Active Substance: IRON
     Dosage: 27 MG, 1X/DAY
  12. FINASTERIDE. [Concomitant]
     Active Substance: FINASTERIDE
     Dosage: 5 MG, 1X/DAY IN THE MORNING
  13. LOSARTAN. [Concomitant]
     Active Substance: LOSARTAN
     Dosage: 25 MG, 1X/DAY IN THE MORNING
  14. KLORCON [Concomitant]
     Dosage: 20 MEQ, EVERY 48 HOURS ON ODD DAYS
  15. INTUNIV [Concomitant]
     Active Substance: GUANFACINE HYDROCHLORIDE
     Dosage: 2 MG, 1X/DAY IN THE EVENING
  16. KLORTABS [Concomitant]
     Dosage: UNK, AS NEEDED
  17. NIACIN. [Concomitant]
     Active Substance: NIACIN
     Dosage: 1000 UNK, 1X/DAY
  18. CENTRUM SILVER [Concomitant]
     Active Substance: MINERALS\VITAMINS
     Dosage: UNK, 1X/DAY

REACTIONS (6)
  - Muscle spasms [Recovering/Resolving]
  - Diarrhoea [Not Recovered/Not Resolved]
  - Pain in extremity [Not Recovered/Not Resolved]
  - Therapeutic response unexpected [Not Recovered/Not Resolved]
  - Headache [Recovered/Resolved]
  - Nausea [Not Recovered/Not Resolved]

NARRATIVE: CASE EVENT DATE: 2019
